FAERS Safety Report 9909563 (Version 2)
Quarter: 2014Q2

REPORT INFORMATION
  Report Type: Spontaneous
  Country: BR (occurrence: BR)
  Receive Date: 20140219
  Receipt Date: 20140414
  Transmission Date: 20141212
  Serious: Yes (Hospitalization, Other)
  Sender: FDA-Public Use
  Company Number: BR-PFIZER INC-2014046224

PATIENT
  Age: 72 Year
  Sex: Female
  Weight: 90 kg

DRUGS (23)
  1. ATENOLOL [Suspect]
     Indication: HYPERTENSION
     Dosage: UNK
     Route: 048
     Dates: start: 2004, end: 201312
  2. OMEPRAZOLE [Suspect]
     Indication: GASTRIC DISORDER
     Dosage: UNK
     Route: 048
  3. SELOZOK [Suspect]
     Indication: TACHYCARDIA
     Dosage: 25 MG, DAILY
     Route: 048
  4. SELOZOK [Suspect]
     Indication: ARRHYTHMIA
  5. ACETYLSALICYLIC ACID [Suspect]
     Dosage: UNK
  6. ACETYLSALICYLIC ACID [Suspect]
     Dosage: UNK
     Route: 065
     Dates: end: 201312
  7. CLORANA [Suspect]
     Indication: HYPERTENSION
     Dosage: UNK, DAILY
     Route: 048
     Dates: start: 2004
  8. LOSARTAN [Concomitant]
     Indication: HYPERTENSION
     Dosage: DAILY
     Route: 048
     Dates: start: 2004
  9. SIMVASTATIN [Concomitant]
     Indication: BLOOD CHOLESTEROL INCREASED
     Dosage: UNK
     Route: 048
     Dates: start: 2004
  10. LEVOTHYROXINE [Concomitant]
     Indication: HYPOTHYROIDISM
     Dosage: UNK
     Route: 048
     Dates: start: 1994
  11. AMITRIPTYLINE [Concomitant]
     Indication: SLEEP DISORDER
     Dosage: UNK
     Route: 048
     Dates: start: 2009
  12. AMITRIPTYLINE [Concomitant]
     Indication: INTERVERTEBRAL DISC PROTRUSION
  13. IBUPROFEN [Concomitant]
     Indication: SLEEP DISORDER
     Dosage: UNK
     Dates: start: 2009
  14. IBUPROFEN [Concomitant]
     Indication: INTERVERTEBRAL DISC PROTRUSION
  15. IBUPROFEN [Concomitant]
     Indication: SLEEP DISORDER
  16. TENOXICAM [Concomitant]
     Indication: SLEEP DISORDER
     Dosage: UNK
     Dates: start: 2009
  17. TENOXICAM [Concomitant]
     Indication: INTERVERTEBRAL DISC PROTRUSION
  18. TENOXICAM [Concomitant]
     Indication: SLEEP DISORDER
  19. FERROUS SULPHATE [Concomitant]
     Indication: ANAEMIA
     Dosage: 300 MG, 2X/DAY
     Dates: start: 2013
  20. FAMOTIDINE [Concomitant]
     Indication: INTERVERTEBRAL DISC PROTRUSION
     Dosage: UNK
     Dates: start: 2009
  21. FAMOTIDINE [Concomitant]
     Indication: SLEEP DISORDER
  22. CHONDROITIN SULFATE [Concomitant]
     Indication: ARTHROPATHY
     Dosage: UNK
  23. GLUCOSAMINE [Concomitant]
     Indication: ARTHROPATHY
     Route: 048

REACTIONS (10)
  - Femur fracture [Recovered/Resolved with Sequelae]
  - Anaemia [Recovered/Resolved]
  - Arrhythmia [Recovering/Resolving]
  - Haemorrhage [Unknown]
  - Fall [Recovered/Resolved]
  - Tachycardia [Recovered/Resolved]
  - Gait disturbance [Not Recovered/Not Resolved]
  - Intervertebral disc protrusion [Not Recovered/Not Resolved]
  - Thrombosis [Recovered/Resolved with Sequelae]
  - Fatigue [Not Recovered/Not Resolved]
